FAERS Safety Report 17572033 (Version 1)
Quarter: 2020Q1

REPORT INFORMATION
  Report Type: Spontaneous
  Country: ES (occurrence: ES)
  Receive Date: 20200323
  Receipt Date: 20200323
  Transmission Date: 20200409
  Serious: Yes (Life-Threatening, Other)
  Sender: FDA-Public Use
  Company Number: ES-MYLANLABS-2020M1028987

PATIENT

DRUGS (6)
  1. DOXORUBICIN [Suspect]
     Active Substance: DOXORUBICIN
     Indication: HER-2 POSITIVE BREAST CANCER
     Dosage: 50 MILLIGRAM/SQ. METER, Q3WK
     Route: 042
  2. NEULASTA [Suspect]
     Active Substance: PEGFILGRASTIM
     Indication: PROPHYLAXIS
     Dosage: 6 MG, GIVEN ON DAY 2 OF EVERY 3 WEEK CYCLE FOR 6 CYCLES
     Route: 058
  3. TRASTUZUMAB. [Suspect]
     Active Substance: TRASTUZUMAB
     Indication: HER-2 POSITIVE BREAST CANCER
     Dosage: 4 MILLIGRAM/KILOGRAM (LOADING DOSE DAY 1)
     Route: 042
  4. MYOCET                             /00330902/ [Suspect]
     Active Substance: DOXORUBICIN HYDROCHLORIDE
     Indication: HER-2 POSITIVE BREAST CANCER
     Dosage: 50 MG/M2, GIVEN ON DAY 1 OF EVERY 3 WEEK CYCLE FOR 6 CYCLES
     Route: 065
  5. TRASTUZUMAB. [Suspect]
     Active Substance: TRASTUZUMAB
     Dosage: 2 MG/KG, QWK (GIVEN FOR 17 WEEKS)
     Route: 042
  6. DOCETAXEL. [Suspect]
     Active Substance: DOCETAXEL
     Indication: HER-2 POSITIVE BREAST CANCER
     Dosage: 60 MILLIGRAM/SQ. METER, Q3WK
     Route: 042

REACTIONS (26)
  - Pulmonary embolism [Unknown]
  - Abdominal pain [Unknown]
  - Hot flush [Unknown]
  - Leukopenia [Unknown]
  - Constipation [Unknown]
  - Alopecia [Unknown]
  - Asthenia [Unknown]
  - Ejection fraction decreased [Unknown]
  - Myalgia [Unknown]
  - Liver function test abnormal [Unknown]
  - Hypersensitivity [Unknown]
  - Dyspnoea [Unknown]
  - Hypertension [Unknown]
  - Stomatitis [Unknown]
  - Pneumonia [Unknown]
  - Diarrhoea [Unknown]
  - Vomiting [Unknown]
  - Mucosal inflammation [Unknown]
  - Syncope [Unknown]
  - Nausea [Unknown]
  - Therapeutic product effect incomplete [Unknown]
  - Febrile neutropenia [Unknown]
  - Thrombocytopenia [Unknown]
  - Lymphopenia [Unknown]
  - Neutropenia [Unknown]
  - Fatigue [Unknown]
